FAERS Safety Report 7033902-0 (Version None)
Quarter: 2010Q4

REPORT INFORMATION
  Report Type: 
  Country: None (occurrence: None)
  Receive Date: 20101007
  Receipt Date: 20091118
  Transmission Date: 20110411
  Serious: Yes (Death, Hospitalization)
  Sender: FDA-Public Use
  Company Number: US-AMGEN-US374763

PATIENT
  Sex: Male
  Weight: 63.8 kg

DRUGS (23)
  1. NPLATE [Suspect]
     Indication: IDIOPATHIC THROMBOCYTOPENIC PURPURA
     Dates: start: 20091113, end: 20091113
  2. ASPIRIN [Concomitant]
     Dates: start: 20080501
  3. DERMAZINC [Concomitant]
  4. FLUTICASONE PROPIONATE [Concomitant]
  5. CLOBETASOL PROPIONATE [Concomitant]
  6. NITROGLYCERIN [Concomitant]
     Route: 060
  7. METOPROLOL TARTRATE [Concomitant]
  8. NORVASC [Concomitant]
  9. ENALAPRIL MALEATE [Concomitant]
  10. ZOCOR [Concomitant]
  11. HALCINONIDE [Concomitant]
  12. BIAXIN [Concomitant]
  13. LAXATIVES [Concomitant]
  14. GLUCOPHAGE [Concomitant]
  15. POLYETHYLENE GLYCOL [Concomitant]
  16. LASIX [Concomitant]
  17. CLINDAMYCIN [Concomitant]
     Route: 042
     Dates: start: 20091101
  18. INSULIN [Concomitant]
  19. LEVOTHYROXINE [Concomitant]
  20. PROTONIX [Concomitant]
  21. UNSPECIFIED INTRAVENOUS FLUIDS [Concomitant]
     Route: 042
  22. PLATELETS [Concomitant]
     Dates: start: 20091112
  23. COUMADIN [Concomitant]
     Dates: start: 20080501

REACTIONS (7)
  - CARDIAC FAILURE CONGESTIVE [None]
  - HAEMATURIA [None]
  - HYPOTHYROIDISM [None]
  - PNEUMONIA [None]
  - RENAL FAILURE ACUTE [None]
  - RESPIRATORY FAILURE [None]
  - UPPER GASTROINTESTINAL HAEMORRHAGE [None]
